FAERS Safety Report 8560905-7 (Version None)
Quarter: 2012Q3

REPORT INFORMATION
  Report Type: 
  Country: None (occurrence: None)
  Receive Date: 20120802
  Receipt Date: 20120725
  Transmission Date: 20120928
  Serious: Yes (Hospitalization, Disabling, Other)
  Sender: FDA-Public Use
  Company Number: US-009507513-1201USA02541

PATIENT

DRUGS (8)
  1. FOSAMAX [Suspect]
     Indication: OSTEOPENIA
     Dosage: 5 MG, QD
     Route: 048
     Dates: start: 20010103
  2. ZOVIRAX [Concomitant]
     Dates: start: 19981229
  3. FOSAMAX [Suspect]
     Indication: OSTEOPOROSIS
     Dosage: 70 MG, QW
     Route: 048
     Dates: start: 20010302, end: 20090201
  4. FOSAMAX [Suspect]
     Dosage: 10 MG, UNK
     Route: 048
     Dates: start: 20030101, end: 20090201
  5. LEVOXYL [Concomitant]
     Dates: start: 19970924
  6. TYLENOL W/ CODEINE NO. 3 [Concomitant]
     Dates: start: 19830224
  7. ZOMIG [Concomitant]
     Indication: HEADACHE
     Dosage: 5 MG, QD
  8. SYNTHROID [Concomitant]
     Dosage: 1 MG, QD

REACTIONS (27)
  - MIGRAINE [None]
  - STAPHYLOCOCCAL INFECTION [None]
  - HYPOTHYROIDISM [None]
  - HYPOALBUMINAEMIA [None]
  - THROMBOPHLEBITIS SUPERFICIAL [None]
  - DENTAL CARIES [None]
  - TOOTH DISORDER [None]
  - CARPAL TUNNEL SYNDROME [None]
  - POSTOPERATIVE FEVER [None]
  - HYPERTENSION [None]
  - EXOSTOSIS [None]
  - PAIN IN EXTREMITY [None]
  - HYPERLIPIDAEMIA [None]
  - TOOTH FRACTURE [None]
  - BONE METABOLISM DISORDER [None]
  - HYPOPROTEINAEMIA [None]
  - INTERVERTEBRAL DISC DEGENERATION [None]
  - OSTEONECROSIS [None]
  - ANAEMIA POSTOPERATIVE [None]
  - OFF LABEL USE [None]
  - VITAMIN D DEFICIENCY [None]
  - HAEMANGIOMA [None]
  - FEMUR FRACTURE [None]
  - ADVERSE EVENT [None]
  - FALL [None]
  - HYPERPARATHYROIDISM [None]
  - OSTEOARTHRITIS [None]
